FAERS Safety Report 6809501-X (Version None)
Quarter: 2010Q2

REPORT INFORMATION
  Report Type: 
  Country: None (occurrence: None)
  Receive Date: 20100630
  Receipt Date: 20100615
  Transmission Date: 20101027
  Serious: Yes (Hospitalization)
  Sender: FDA-Public Use
  Company Number: FR-ASTRAZENECA-2010SE27838

PATIENT
  Age: 6309 Day
  Sex: Female

DRUGS (16)
  1. NAROPIN [Suspect]
     Route: 050
     Dates: start: 20100517, end: 20100517
  2. PROPOFOL [Suspect]
     Route: 042
     Dates: start: 20100517, end: 20100517
  3. ATRICURIUM HOSPIRA [Suspect]
     Route: 042
     Dates: start: 20100517, end: 20100517
  4. SUFENTA PRESERVATIVE FREE [Suspect]
     Route: 042
     Dates: start: 20100517, end: 20100517
  5. NEURONTIN [Suspect]
     Route: 048
     Dates: start: 20100517, end: 20100517
  6. BETADINE DERMAL [Suspect]
     Route: 003
     Dates: start: 20100516, end: 20100517
  7. DROPERIDOL [Suspect]
     Route: 042
     Dates: start: 20100517, end: 20100517
  8. LOVENOX [Suspect]
     Route: 058
     Dates: start: 20100517, end: 20100518
  9. KETAMINE HCL [Suspect]
     Route: 042
     Dates: start: 20100517, end: 20100517
  10. AUGMENTIN '125' [Suspect]
     Dosage: 2 + 200 MG
     Route: 042
     Dates: start: 20100517, end: 20100517
  11. SEVORANE [Suspect]
     Route: 055
     Dates: start: 20100517, end: 20100517
  12. DESOBEL [Concomitant]
  13. FLURBIPROFEN [Concomitant]
  14. DONORMYL [Concomitant]
  15. PERFALGAN [Concomitant]
  16. ACUPAN [Concomitant]

REACTIONS (2)
  - HAEMATURIA [None]
  - RENAL FAILURE ACUTE [None]
